FAERS Safety Report 4393217-6 (Version None)
Quarter: 2004Q3

REPORT INFORMATION
  Report Type: 
  Country: None (occurrence: None)
  Receive Date: 20040702
  Receipt Date: 20040622
  Transmission Date: 20050211
  Serious: Yes (Hospitalization)
  Sender: FDA-Public Use
  Company Number: GB-JNJFOC-20040302074

PATIENT
  Age: 62 Year
  Sex: Female

DRUGS (2)
  1. REMICADE [Suspect]
     Indication: RHEUMATOID ARTHRITIS
     Dosage: 162 MG, INTRAVENOUS
     Route: 042
     Dates: start: 20040127, end: 20040309
  2. PARACETAMOL (PARACETAMOL) [Concomitant]

REACTIONS (8)
  - BLOOD PRESSURE INCREASED [None]
  - DYSPNOEA [None]
  - FEELING COLD [None]
  - HYPOXIA [None]
  - INFUSION RELATED REACTION [None]
  - PERIPHERAL CIRCULATORY FAILURE [None]
  - TACHYCARDIA [None]
  - TREMOR [None]
